FAERS Safety Report 12772157 (Version 1)
Quarter: 2016Q3

REPORT INFORMATION
  Report Type: Spontaneous
  Country: US (occurrence: US)
  Receive Date: 20160922
  Receipt Date: 20160922
  Transmission Date: 20161109
  Serious: Yes (Other)
  Sender: FDA-Public Use
  Company Number: US-BAYER-2016-180638

PATIENT
  Age: 50 Year
  Sex: Male

DRUGS (2)
  1. GADAVIST [Suspect]
     Active Substance: GADOBUTROL
     Indication: SCAN
     Dosage: 8 ML, ONCE
     Dates: start: 201609, end: 201609
  2. GADAVIST [Suspect]
     Active Substance: GADOBUTROL
     Indication: SCAN
     Dosage: 8 ML WITH 20ML SALINE PUSH
     Dates: start: 201609, end: 201609

REACTIONS (1)
  - Generalised tonic-clonic seizure [None]
